FAERS Safety Report 6044406-6 (Version None)
Quarter: 2009Q1

REPORT INFORMATION
  Report Type: 
  Country: None (occurrence: None)
  Receive Date: 20090120
  Receipt Date: 20090115
  Transmission Date: 20090719
  Serious: Yes (Hospitalization)
  Sender: FDA-Public Use
  Company Number: FR-WYE-G02940209

PATIENT
  Sex: Female

DRUGS (2)
  1. ADVIL LIQUI-GELS [Suspect]
     Indication: MIGRAINE
     Dosage: UNKNOWN
     Route: 048
     Dates: start: 20081121, end: 20081122
  2. VOLTAREN [Suspect]
     Indication: BACK PAIN
     Route: 048
     Dates: start: 20081116, end: 20081120

REACTIONS (2)
  - ENTEROCOLITIS HAEMORRHAGIC [None]
  - PROCTOCOLITIS [None]
